FAERS Safety Report 24888505 (Version 1)
Quarter: 2025Q1

REPORT INFORMATION
  Report Type: Spontaneous
  Country: US (occurrence: US)
  Receive Date: 20250127
  Receipt Date: 20250127
  Transmission Date: 20250409
  Serious: Yes (Hospitalization, Other)
  Sender: ACCORD
  Company Number: US-Accord-466120

PATIENT
  Sex: Male

DRUGS (6)
  1. CAPECITABINE [Suspect]
     Active Substance: CAPECITABINE
     Indication: Colon cancer metastatic
     Dosage: 1000 MG/M2 TWO TIMES PER DAY (14 DAYS ON, 7 DAYS OFF)
  2. ALLOPURINOL [Concomitant]
     Active Substance: ALLOPURINOL
  3. LACTULOSE [Concomitant]
     Active Substance: LACTULOSE
     Dosage: 10 G TWO TIMES PER DAY
  4. OLANZAPINE [Concomitant]
     Active Substance: OLANZAPINE
  5. QUETIAPINE [Concomitant]
     Active Substance: QUETIAPINE
  6. RIFAXIMIN [Concomitant]
     Active Substance: RIFAXIMIN
     Dosage: 550 MG TWO TIMES PER DAY

REACTIONS (2)
  - Hyperammonaemic encephalopathy [Recovered/Resolved]
  - Gastrointestinal haemorrhage [Unknown]
